FAERS Safety Report 7239259-4 (Version None)
Quarter: 2011Q1

REPORT INFORMATION
  Report Type: 
  Country: None (occurrence: None)
  Receive Date: 20110121
  Receipt Date: 20110113
  Transmission Date: 20110831
  Serious: Yes (Hospitalization)
  Sender: FDA-Public Use
  Company Number: US-ASTRAZENECA-2011SE02543

PATIENT
  Sex: Male

DRUGS (2)
  1. HYPERTENSIVE MEDICATION [Concomitant]
  2. CRESTOR [Suspect]
     Route: 048

REACTIONS (2)
  - ANXIETY [None]
  - ATRIAL FIBRILLATION [None]
